FAERS Safety Report 8267977-8 (Version None)
Quarter: 2012Q2

REPORT INFORMATION
  Report Type: 
  Country: None (occurrence: None)
  Receive Date: 20120409
  Receipt Date: 20120401
  Transmission Date: 20120825
  Serious: Yes (Other)
  Sender: FDA-Public Use
  Company Number: PHHY2012MX018700

PATIENT
  Sex: Female

DRUGS (5)
  1. METFORMIN HCL [Concomitant]
     Dosage: UNK UKN, UNK
  2. TENORMIN [Concomitant]
     Indication: HYPERTENSION
     Dosage: 0.5 DFDAILY
     Dates: start: 20120201
  3. REDIVAN [Concomitant]
     Indication: BLOOD CHOLESTEROL
     Dosage: 1 DF (UNK), DAILY
     Dates: start: 20120201
  4. DIOVAN [Suspect]
     Indication: HYPERTENSION
     Dosage: 1 DF (160 MG) DAILY
     Dates: start: 20120201
  5. DIOVAN [Suspect]
     Dosage: 0.5 DF (160 MG) DAILY

REACTIONS (7)
  - HEART RATE DECREASED [None]
  - ARRHYTHMIA [None]
  - FEELING ABNORMAL [None]
  - BLOOD GLUCOSE ABNORMAL [None]
  - BLOOD PRESSURE FLUCTUATION [None]
  - WRONG TECHNIQUE IN DRUG USAGE PROCESS [None]
  - MUSCLE SPASMS [None]
